FAERS Safety Report 8315871-6 (Version None)
Quarter: 2012Q2

REPORT INFORMATION
  Report Type: 
  Country: None (occurrence: None)
  Receive Date: 20120427
  Receipt Date: 20120419
  Transmission Date: 20120825
  Serious: Yes (Hospitalization)
  Sender: FDA-Public Use
  Company Number: US-BIOGENIDEC-2011BI041404

PATIENT
  Sex: Female

DRUGS (3)
  1. AVONEX [Suspect]
     Indication: MULTIPLE SCLEROSIS
     Route: 030
     Dates: start: 20091031
  2. GABAPENTIN [Concomitant]
     Indication: MULTIPLE SCLEROSIS
  3. BACLOFEN [Concomitant]
     Indication: MULTIPLE SCLEROSIS

REACTIONS (3)
  - INTERVERTEBRAL DISC PROTRUSION [None]
  - BACK DISORDER [None]
  - LUMBAR SPINAL STENOSIS [None]
